FAERS Safety Report 6271785-7 (Version None)
Quarter: 2009Q3

REPORT INFORMATION
  Report Type: 
  Country: None (occurrence: None)
  Receive Date: 20090717
  Receipt Date: 20090710
  Transmission Date: 20100115
  Serious: Yes (Other)
  Sender: FDA-Public Use
  Company Number: US-JNJFOC-20090703945

PATIENT
  Sex: Female
  Weight: 90.72 kg

DRUGS (1)
  1. UNSPECIFIED TRAMADOL [Suspect]
     Indication: BACK PAIN
     Route: 048

REACTIONS (1)
  - GASTRIC PERFORATION [None]
